FAERS Safety Report 4378328-3 (Version None)
Quarter: 2004Q2

REPORT INFORMATION
  Report Type: 
  Country: None (occurrence: None)
  Receive Date: 20040601
  Receipt Date: 20040304
  Transmission Date: 20050107
  Serious: No
  Sender: FDA-Public Use
  Company Number: WAES 0403USA00396

PATIENT
  Age: 55 Year
  Sex: Female

DRUGS (4)
  1. ZETIA [Suspect]
     Dosage: PO
     Route: 048
  2. LIPITOR [Concomitant]
  3. ASPIRIN [Concomitant]
  4. MULTIVITAMIN [Concomitant]

REACTIONS (2)
  - GLOSSODYNIA [None]
  - TONGUE ULCERATION [None]
